FAERS Safety Report 18277812 (Version 3)
Quarter: 2021Q3

REPORT INFORMATION
  Report Type: Spontaneous
  Country: DE (occurrence: DE)
  Receive Date: 20200917
  Receipt Date: 20210705
  Transmission Date: 20211014
  Serious: Yes (Life-Threatening, Hospitalization)
  Sender: FDA-Public Use
  Company Number: DE-SA-2020SA250734

PATIENT
  Age: 76 Year
  Sex: Male

DRUGS (21)
  1. LEVOTHYROXINE SODIUM. [Concomitant]
     Active Substance: LEVOTHYROXINE SODIUM
     Dosage: 175 UG, QD
     Route: 048
  2. SITAGLIPTIN [Concomitant]
     Active Substance: SITAGLIPTIN
     Dosage: 100 MG, 1?0?0?0, TABLETS
     Route: 048
  3. METOPROLOL. [Concomitant]
     Active Substance: METOPROLOL
     Dosage: 95 MG, 1?0?1?0, SUSTAINED?RELEASE TABLETS
     Route: 048
  4. VITAMIN D [COLECALCIFEROL] [Concomitant]
     Active Substance: CHOLECALCIFEROL
     Dosage: 20,000 IU, 5?0?0?0, DROPS
     Route: 048
  5. RIFAMPICIN [Suspect]
     Active Substance: RIFAMPIN
     Dosage: UNK MG
     Dates: start: 20200711
  6. NEPRESOL [DIHYDRALAZINE MESILATE] [Concomitant]
     Dosage: UNK MG, TID
     Route: 048
  7. PANTOPRAZOLE [Concomitant]
     Active Substance: PANTOPRAZOLE
     Dosage: 20 MG, QD, 1?0?0?0
     Route: 048
  8. ETHAMBUTOL [Interacting]
     Active Substance: ETHAMBUTOL HYDROCHLORIDE
     Dosage: UNK MG
     Dates: start: 20200711
  9. APIXABAN [Interacting]
     Active Substance: APIXABAN
     Dosage: 5 MG, BID (1?0?1?0)
     Route: 048
  10. AMLODIPINE [Concomitant]
     Active Substance: AMLODIPINE BESYLATE
     Dosage: 10 MG, QD (1?0?0?0)
     Route: 048
  11. PANTOPRAZOL [PANTOPRAZOLE] [Concomitant]
     Active Substance: PANTOPRAZOLE
     Dosage: 20 MG, 1?0?0?0, TABLETS
     Route: 048
  12. COLECALCIFEROL [Concomitant]
     Active Substance: CHOLECALCIFEROL
     Dosage: 20,000 IU, 5?0?0?0, DROPS
     Route: 048
  13. METFORMIN [Concomitant]
     Active Substance: METFORMIN HYDROCHLORIDE
     Dosage: 1000 MG, TID (1?1?1?0)
     Route: 048
  14. TORASEMIDE [Interacting]
     Active Substance: TORSEMIDE
     Dosage: 10 MG, QD, 1?0?0?0
     Route: 048
  15. ISONIAZID. [Interacting]
     Active Substance: ISONIAZID
     Dosage: UNK MG
     Dates: start: 20200711
  16. MAGALDRAT [MAGALDRATE] [Concomitant]
     Dosage: 1600 MG, QD, 0?0?1?0
     Route: 048
  17. TRIMBOW [Concomitant]
     Active Substance: BECLOMETHASONE DIPROPIONATE\FORMOTEROL FUMARATE\GLYCOPYRROLATE
     Dosage: 87/5/9 G, 2?0?2?0, METERED DOSE INHALER
  18. PYRAZINAMIDE. [Interacting]
     Active Substance: PYRAZINAMIDE
     Dosage: UNK MG
     Dates: start: 20200711
  19. CANDESARTAN. [Concomitant]
     Active Substance: CANDESARTAN
     Dosage: 16 MG, BID (1?0?1?0)
     Route: 048
  20. GLYCOPYRRONIUM BROMIDE;INDACATEROL [Concomitant]
     Active Substance: GLYCOPYRRONIUM\INDACATEROL
     Dosage: 43/85 UG, 1?0?0?0,
     Route: 048
  21. LEVOTHYROXINUM NATRICUM [Concomitant]
     Dosage: 175 UG, QD, 1?0?0?0

REACTIONS (11)
  - Cough [Unknown]
  - Night sweats [Unknown]
  - General physical health deterioration [Unknown]
  - Pyrexia [Unknown]
  - Haemoptysis [Unknown]
  - Condition aggravated [Unknown]
  - Product monitoring error [Unknown]
  - Fatigue [Unknown]
  - Labelled drug-drug interaction medication error [Unknown]
  - Labelled drug-drug interaction medication error [Unknown]
  - Dehydration [Unknown]

NARRATIVE: CASE EVENT DATE: 20200711
